FAERS Safety Report 5323895-6 (Version None)
Quarter: 2007Q2

REPORT INFORMATION
  Report Type: 
  Country: None (occurrence: None)
  Receive Date: 20070510
  Receipt Date: 20070510
  Transmission Date: 20071010
  Serious: Yes (Other)
  Sender: FDA-Public Use
  Company Number: None

PATIENT
  Age: 67 Year
  Sex: Female

DRUGS (1)
  1. HYDROXYCHLOROQUINE 200MG TABLETS WATSON [Suspect]
     Dosage: TAKE 1 TABLET TWICE A DAY
     Dates: start: 20070306, end: 20070501

REACTIONS (1)
  - PHARMACEUTICAL PRODUCT COMPLAINT [None]
